FAERS Safety Report 13904326 (Version 1)
Quarter: 2017Q3

REPORT INFORMATION
  Report Type: Spontaneous
  Country: US (occurrence: None)
  Receive Date: 20170824
  Receipt Date: 20170824
  Transmission Date: 20171127
  Serious: No
  Sender: FDA-Public Use
  Company Number: None

PATIENT
  Age: 58 Year
  Sex: Female

DRUGS (1)
  1. STELARA [Suspect]
     Active Substance: USTEKINUMAB
     Dosage: 90MG Q12 WEEKS SQ
     Route: 058
     Dates: start: 20161230

REACTIONS (3)
  - Syringe issue [None]
  - Drug dose omission [None]
  - Device use error [None]

NARRATIVE: CASE EVENT DATE: 20170823
